FAERS Safety Report 9374988 (Version 1)
Quarter: 2013Q2

REPORT INFORMATION
  Report Type: Spontaneous
  Country: DE (occurrence: DE)
  Receive Date: 20130628
  Receipt Date: 20130628
  Transmission Date: 20140414
  Serious: Yes (Life-Threatening, Other)
  Sender: FDA-Public Use
  Company Number: PHHY2013DE066806

PATIENT
  Sex: Male

DRUGS (3)
  1. TASIGNA [Suspect]
     Indication: CHRONIC MYELOID LEUKAEMIA
     Dosage: 300 MG (2X150 MG), BID
  2. TASIGNA [Suspect]
     Dosage: 400 MG (2X200 MG), BID
  3. TASIGNA [Suspect]
     Dosage: UNK

REACTIONS (1)
  - Cognitive disorder [Unknown]
